FAERS Safety Report 9443640 (Version 2)
Quarter: 2013Q3

REPORT INFORMATION
  Report Type: Spontaneous
  Country: US (occurrence: US)
  Receive Date: 20130806
  Receipt Date: 20130911
  Transmission Date: 20140515
  Serious: No
  Sender: FDA-Public Use
  Company Number: US-PFIZER INC-2013226652

PATIENT
  Age: 57 Year
  Sex: Male
  Weight: 81.63 kg

DRUGS (4)
  1. ARTHROTEC [Suspect]
     Indication: OSTEOARTHRITIS
     Dosage: 75 MG/200, 2X/DAY
     Dates: start: 2012
  2. BENADRYL [Concomitant]
     Indication: HYPERSENSITIVITY
     Dosage: UNK
  3. LORTAB [Concomitant]
     Dosage: UNK
  4. FLONASE [Concomitant]
     Indication: HYPERSENSITIVITY
     Dosage: UNK

REACTIONS (2)
  - Hallucination [Recovered/Resolved]
  - Vision blurred [Recovered/Resolved]
